FAERS Safety Report 16883737 (Version 1)
Quarter: 2019Q4

REPORT INFORMATION
  Report Type: Spontaneous
  Country: ES (occurrence: ES)
  Receive Date: 20191004
  Receipt Date: 20191004
  Transmission Date: 20200122
  Serious: Yes (Hospitalization)
  Sender: FDA-Public Use
  Company Number: ES-TEVA-2019-ES-1117482

PATIENT
  Age: 59 Year
  Sex: Female

DRUGS (4)
  1. ACETILCISTEINA (233A) [Concomitant]
     Indication: RESPIRATORY TRACT INFECTION
     Dosage: 600 MG 1 DAYS
     Route: 048
     Dates: start: 20190515, end: 20190522
  2. BISOPROLOL (2328A) [Concomitant]
     Active Substance: BISOPROLOL
     Indication: ATRIAL FIBRILLATION
     Dosage: 2.5 MG 1 DAYS
     Route: 048
     Dates: start: 20190109
  3. FLECAINIDA ACETATO (2363AC) [Concomitant]
     Active Substance: FLECAINIDE ACETATE
     Indication: ATRIAL FIBRILLATION
     Dosage: 50 MG 12 HOURS
     Route: 048
     Dates: start: 20190109
  4. LEVOFLOXACINO (2791A) [Suspect]
     Active Substance: LEVOFLOXACIN
     Indication: RESPIRATORY TRACT INFECTION
     Dosage: 500 MG 1 DAYS
     Route: 048
     Dates: start: 20190507, end: 20190513

REACTIONS (1)
  - Autoimmune hepatitis [Recovering/Resolving]

NARRATIVE: CASE EVENT DATE: 20190607
